FAERS Safety Report 10404473 (Version 1)
Quarter: 2014Q1

REPORT INFORMATION
  Report Type: Spontaneous
  Country: US (occurrence: None)
  Receive Date: 20140306
  Receipt Date: 20140306
  Transmission Date: 20141002
  Serious: Yes (Hospitalization, Other)
  Sender: FDA-Public Use
  Company Number: 163-21880-12090877

PATIENT
  Age: 74 Year
  Sex: Male
  Weight: 68 kg

DRUGS (35)
  1. REVLIMID (LENALIDOMIDE) (25 MILLIGRAM, CAPSULES) [Suspect]
     Indication: PLASMA CELL MYELOMA
     Dosage: 25 MG, 21 IN 28 D, PO
     Route: 048
     Dates: start: 201202
  2. COMBIVENT [Concomitant]
  3. NITROGLYCERIN (GLYCERYL TRINITRATE) [Concomitant]
  4. COMPLETE MULTIVITAMIN (MULTIVITAMINS) [Concomitant]
  5. CYMBALTA (DULOXETINE HYDROCHLORIDE) [Concomitant]
  6. AMLODIPINE BESYLATE [Concomitant]
  7. LYRICA (PREGABALIN) [Concomitant]
  8. POTASSIUM CHLORIDE [Concomitant]
  9. SUCRALFATE [Concomitant]
  10. ALENDRONATE SODIUM [Concomitant]
  11. BISOPROLOL FUMARATE [Concomitant]
  12. FENTANYL [Concomitant]
  13. ONDANSETRON [Concomitant]
  14. TAMSULOSIN HCL [Concomitant]
  15. METHOCARBAMOL [Concomitant]
  16. ACTONEL (RISEDRONATE SODIUM) [Concomitant]
  17. CHOLESTYRAMINE (COLESTYRAMINE) [Concomitant]
  18. ALBUTEROL/(ALBUTAMOL) [Concomitant]
  19. METANX [Concomitant]
  20. ZINC SULFATE [Concomitant]
  21. VITAMIN D2 (ERGOCALCIFEROL) [Concomitant]
  22. HYOSCYAMINE SULFATE [Concomitant]
  23. METHYLPREDNISOLONE [Concomitant]
  24. NUCYNTA (TAPENTADOL HYDROCHLORIDE) [Concomitant]
  25. FOLBIC (HEPAGRISEVIT FORTE-N TABLET) [Concomitant]
  26. MAG-OXIDE [Concomitant]
  27. FLORANEX (LACTINEX) [Concomitant]
  28. MEGACE (MEGESTROL ACETATE) [Concomitant]
  29. TORSEMIDE [Concomitant]
  30. FLUTICASONE PROP (FLUTICASONE PROPIONATE) [Concomitant]
  31. MIRTAZAPINE [Concomitant]
  32. DIPHENOXYLATE-ATROPINE (LOMOTIL) [Concomitant]
  33. HYDROCODONE-ACETMINOPHEN (VICODIN) [Concomitant]
  34. DRONABINOL [Concomitant]
  35. CALCITROL [Concomitant]

REACTIONS (7)
  - Dehydration [None]
  - Diarrhoea [None]
  - Thrombosis [None]
  - Clostridium difficile infection [None]
  - Full blood count decreased [None]
  - Decubitus ulcer [None]
  - Pruritus [None]
